FAERS Safety Report 6226389-9 (Version None)
Quarter: 2009Q2

REPORT INFORMATION
  Report Type: 
  Country: None (occurrence: None)
  Receive Date: 20090612
  Receipt Date: 20090525
  Transmission Date: 20091009
  Serious: No
  Sender: FDA-Public Use
  Company Number: US-ABBOTT-09P-163-0573528-00

PATIENT
  Sex: Male
  Weight: 59.02 kg

DRUGS (20)
  1. HUMIRA [Suspect]
     Indication: PSORIASIS
     Route: 058
     Dates: start: 20090201
  2. CLOBETASOL PROPIONATE [Concomitant]
     Indication: PSORIASIS
     Dosage: DAILY
     Route: 061
  3. DOBANEX [Concomitant]
     Indication: PSORIASIS
     Dosage: DAILY
     Route: 061
  4. AMLACTIN [Concomitant]
     Indication: PSORIASIS
     Dosage: AS NEEDED
     Route: 061
  5. TRETINOIN [Concomitant]
     Indication: PSORIASIS
     Dosage: AS NEEDED
     Route: 061
  6. AGGRENOX [Concomitant]
     Indication: CARDIAC DISORDER
     Dosage: DAILY
  7. ASPIRIN [Concomitant]
     Indication: CARDIAC DISORDER
     Dosage: DAILY
  8. CITALOPRAM HYDROBROMIDE [Concomitant]
     Indication: DRUG USE FOR UNKNOWN INDICATION
     Dosage: DAILY
  9. OMEPRAZOLE [Concomitant]
     Indication: PROPHYLAXIS AGAINST GASTROINTESTINAL ULCER
     Dosage: DAILY
  10. SIMVASTATIN [Concomitant]
     Indication: CARDIAC DISORDER
     Dosage: DAILY
  11. RESERPINE [Concomitant]
     Indication: HYPERTENSION
     Dosage: DAILY
  12. LASIX [Concomitant]
     Indication: CARDIAC DISORDER
     Dosage: DAILY
  13. METOPROLOL SUCCINATE [Concomitant]
     Indication: HYPERTENSION
     Dosage: DIALY
  14. AMLODIPINE BESYLATE [Concomitant]
     Indication: HYPERTENSION
     Dosage: DAILY
  15. MULTI-VITAMIN [Concomitant]
     Indication: VITAMIN SUPPLEMENTATION
     Dosage: DAILY
  16. ASCORBIC ACID [Concomitant]
     Indication: VITAMIN SUPPLEMENTATION
     Dosage: DAILY
  17. LACTOBACILLIS [Concomitant]
     Indication: PROPHYLAXIS
     Dosage: DAILY
     Route: 048
  18. LACTOBACILLIS [Concomitant]
     Indication: GASTRIC DISORDER
  19. SALICYLIC ACID [Concomitant]
     Indication: PSORIASIS
     Dosage: AS NEEDED
     Route: 061
  20. COLCHICINE [Concomitant]
     Indication: GOUT
     Dosage: DAILY

REACTIONS (1)
  - DRUG INEFFECTIVE [None]
